FAERS Safety Report 18702849 (Version 1)
Quarter: 2021Q1

REPORT INFORMATION
  Report Type: Spontaneous
  Country: US (occurrence: US)
  Receive Date: 20210105
  Receipt Date: 20210105
  Transmission Date: 20210419
  Serious: Yes (Death, Other)
  Sender: FDA-Public Use
  Company Number: US-PURDUE-USA-2020-0192397

PATIENT
  Sex: Female

DRUGS (14)
  1. MS CONTIN [Suspect]
     Active Substance: MORPHINE SULFATE
     Indication: BACK INJURY
     Dosage: UNK
     Route: 048
  2. SUBOXONE [Suspect]
     Active Substance: BUPRENORPHINE HYDROCHLORIDE\NALOXONE HYDROCHLORIDE
     Indication: BACK INJURY
     Dosage: UNK
     Route: 065
  3. SOMA [Suspect]
     Active Substance: CARISOPRODOL
     Indication: BACK INJURY
     Dosage: UNK
     Route: 065
  4. VALIUM [Suspect]
     Active Substance: DIAZEPAM
     Indication: BACK INJURY
     Dosage: UNK
     Route: 065
  5. HYSINGLA ER [Suspect]
     Active Substance: HYDROCODONE BITARTRATE
     Indication: BACK INJURY
     Dosage: UNK
     Route: 048
  6. OXYCONTIN [Suspect]
     Active Substance: OXYCODONE HYDROCHLORIDE
     Indication: BACK INJURY
     Dosage: UNK
     Route: 048
  7. OXYCODONE HCL TABLETS (RHODES 91?490) [Suspect]
     Active Substance: OXYCODONE HYDROCHLORIDE
     Indication: BACK INJURY
     Dosage: UNK
     Route: 048
  8. OXYIR [Suspect]
     Active Substance: OXYCODONE HYDROCHLORIDE
     Indication: BACK INJURY
     Dosage: UNK
     Route: 065
  9. OPANA [Suspect]
     Active Substance: OXYMORPHONE HYDROCHLORIDE
     Indication: BACK INJURY
     Dosage: UNK
     Route: 065
  10. FLEXERIL [Suspect]
     Active Substance: CYCLOBENZAPRINE HYDROCHLORIDE
     Indication: BACK INJURY
     Dosage: UNK
     Route: 065
  11. BUTRANS [Suspect]
     Active Substance: BUPRENORPHINE
     Indication: BACK INJURY
     Dosage: UNK
     Route: 062
  12. XANAX [Suspect]
     Active Substance: ALPRAZOLAM
     Indication: BACK INJURY
     Dosage: UNK
     Route: 065
  13. HYDROCODONE BITARTRATE AND ACETAMINOPHEN [Suspect]
     Active Substance: ACETAMINOPHEN\HYDROCODONE BITARTRATE
     Indication: BACK INJURY
     Dosage: UNK
     Route: 048
  14. LORAZEPAM. [Suspect]
     Active Substance: LORAZEPAM
     Indication: BACK INJURY
     Dosage: UNK
     Route: 065

REACTIONS (6)
  - Drug abuse [Fatal]
  - Prescribed overdose [Unknown]
  - Cardiac disorder [Unknown]
  - Intentional product misuse [Fatal]
  - Overdose [Unknown]
  - Drug dependence [Fatal]
